FAERS Safety Report 14502983 (Version 1)
Quarter: 2018Q1

REPORT INFORMATION
  Report Type: Spontaneous
  Country: US (occurrence: US)
  Receive Date: 20180208
  Receipt Date: 20180208
  Transmission Date: 20180509
  Serious: Yes (Other)
  Sender: FDA-Public Use
  Company Number: US-CIPLA LTD.-2018US03204

PATIENT

DRUGS (22)
  1. TRIAMCINOLONE ACETONIDE. [Suspect]
     Active Substance: TRIAMCINOLONE ACETONIDE
     Indication: LICHEN SCLEROSUS
     Dosage: UNK
     Route: 061
  2. HYDROCORTISONE. [Suspect]
     Active Substance: HYDROCORTISONE
     Indication: LICHEN SCLEROSUS
     Dosage: UNK
     Route: 061
  3. HYDROCORTISONE. [Suspect]
     Active Substance: HYDROCORTISONE
     Indication: DERMATITIS CONTACT
     Dosage: UNK, BID
     Route: 061
  4. GABAPENTIN. [Suspect]
     Active Substance: GABAPENTIN
     Indication: LICHEN SCLEROSUS
     Dosage: 100 MG, QID, INCLUDING A DOSE AT BEDTIME
     Route: 065
  5. IODOCHLORHYDROXYQUIN [Suspect]
     Active Substance: CLIOQUINOL
     Indication: LICHEN SCLEROSUS
     Dosage: UNK
     Route: 061
  6. CAMPHOR [Suspect]
     Active Substance: CAMPHOR
     Indication: LICHEN SCLEROSUS
     Dosage: UNK
     Route: 061
  7. PETROLATUM. [Suspect]
     Active Substance: PETROLATUM
     Indication: DERMATITIS CONTACT
     Dosage: UNK, BID
     Route: 061
  8. MENTHOL. [Suspect]
     Active Substance: MENTHOL
     Indication: LICHEN SCLEROSUS
     Dosage: UNK
     Route: 061
  9. MENTHOL. [Suspect]
     Active Substance: MENTHOL
     Indication: DERMATITIS CONTACT
     Dosage: UNK, BID
     Route: 061
  10. IODOCHLORHYDROXYQUIN [Suspect]
     Active Substance: CLIOQUINOL
     Indication: DERMATITIS CONTACT
     Dosage: UNK, BID
     Route: 061
  11. FINASTERIDE. [Suspect]
     Active Substance: FINASTERIDE
     Indication: DERMATITIS CONTACT
  12. CAMPHOR [Suspect]
     Active Substance: CAMPHOR
     Indication: DERMATITIS CONTACT
     Dosage: UNK, BID
     Route: 061
  13. ESTRADIOL. [Suspect]
     Active Substance: ESTRADIOL
     Indication: LICHEN SCLEROSUS
     Dosage: UNK
     Route: 061
  14. ESTRADIOL. [Suspect]
     Active Substance: ESTRADIOL
     Indication: DERMATITIS CONTACT
     Dosage: UNK, BID
     Route: 061
  15. TRIAMCINOLONE ACETONIDE. [Suspect]
     Active Substance: TRIAMCINOLONE ACETONIDE
     Indication: DERMATITIS CONTACT
     Dosage: UNK, BID
     Route: 061
  16. LIDOCAINE. [Suspect]
     Active Substance: LIDOCAINE
     Indication: LICHEN SCLEROSUS
     Dosage: UNK
     Route: 061
  17. LIDOCAINE. [Suspect]
     Active Substance: LIDOCAINE
     Indication: DERMATITIS CONTACT
     Dosage: UNK, BID
     Route: 061
  18. PETROLATUM. [Suspect]
     Active Substance: PETROLATUM
     Indication: LICHEN SCLEROSUS
     Dosage: UNK
     Route: 061
  19. FINASTERIDE. [Suspect]
     Active Substance: FINASTERIDE
     Indication: LICHEN SCLEROSUS
     Dosage: UNK
     Route: 065
  20. GABAPENTIN. [Suspect]
     Active Substance: GABAPENTIN
     Indication: DERMATITIS CONTACT
     Dosage: 300 MG, TID
     Route: 065
  21. CLOBETASOL [Suspect]
     Active Substance: CLOBETASOL
     Indication: LICHEN SCLEROSUS
     Dosage: UNK
     Route: 061
  22. CLOBETASOL [Suspect]
     Active Substance: CLOBETASOL
     Indication: DERMATITIS CONTACT
     Dosage: UNK, BID
     Route: 061

REACTIONS (4)
  - Lichen sclerosus [None]
  - Drug hypersensitivity [None]
  - Disease recurrence [Recovering/Resolving]
  - Drug ineffective [Unknown]
